FAERS Safety Report 9209729 (Version 1)
Quarter: 2013Q2

REPORT INFORMATION
  Report Type: Spontaneous
  Country: US (occurrence: US)
  Receive Date: 20130404
  Receipt Date: 20130404
  Transmission Date: 20140414
  Serious: Yes (Other)
  Sender: FDA-Public Use
  Company Number: US-AMGEN-USASP2013021048

PATIENT
  Age: 38 Year
  Sex: Female

DRUGS (5)
  1. ARANESP [Suspect]
     Indication: RENAL FAILURE
     Dosage: UNK UNK, QMO
     Dates: start: 1998
  2. ARANESP [Suspect]
  3. PROCRIT [Suspect]
     Indication: PRODUCT USED FOR UNKNOWN INDICATION
     Dosage: UNK
     Dates: start: 1999, end: 1999
  4. PROGRAF [Concomitant]
  5. IRON [Concomitant]

REACTIONS (9)
  - Renal transplant [Unknown]
  - Caesarean section [Unknown]
  - Postpartum haemorrhage [Unknown]
  - Premature delivery [Unknown]
  - Scar [Unknown]
  - Sepsis [Unknown]
  - Drug hypersensitivity [Unknown]
  - Pruritus [Unknown]
  - Urticaria [Unknown]
